FAERS Safety Report 9323746 (Version 2)
Quarter: 2014Q1

REPORT INFORMATION
  Report Type: Spontaneous
  Country: JP (occurrence: JP)
  Receive Date: 20130603
  Receipt Date: 20140227
  Transmission Date: 20141002
  Serious: Yes (Death, Life-Threatening, Hospitalization)
  Sender: FDA-Public Use
  Company Number: JP-JNJFOC-20130600027

PATIENT
  Age: 53 Year
  Sex: Male
  Weight: 53 kg

DRUGS (13)
  1. BENDAMUSTINE HYDROCHLORIDE [Suspect]
     Indication: B-CELL LYMPHOMA
     Dosage: 6 CYCLES
     Route: 042
     Dates: start: 20120201, end: 20120202
  2. BENDAMUSTINE HYDROCHLORIDE [Suspect]
     Indication: B-CELL LYMPHOMA
     Dosage: REGIMEN 2
     Route: 042
     Dates: start: 20130222, end: 20130223
  3. BENDAMUSTINE HYDROCHLORIDE [Suspect]
     Indication: B-CELL LYMPHOMA
     Dosage: REGIMEN 3
     Route: 042
     Dates: start: 20120314, end: 20120315
  4. BENDAMUSTINE HYDROCHLORIDE [Suspect]
     Indication: B-CELL LYMPHOMA
     Route: 042
     Dates: start: 20120523
  5. BENDAMUSTINE HYDROCHLORIDE [Suspect]
     Indication: B-CELL LYMPHOMA
     Route: 042
     Dates: start: 20120501, end: 20120502
  6. BENDAMUSTINE HYDROCHLORIDE [Suspect]
     Indication: B-CELL LYMPHOMA
     Route: 042
     Dates: start: 20120522, end: 20120523
  7. BENDAMUSTINE HYDROCHLORIDE [Suspect]
     Indication: B-CELL LYMPHOMA
     Dosage: REGIMEN 4
     Route: 042
     Dates: start: 20120411, end: 20120412
  8. OSELTAMIVIR PHOSPHATE [Concomitant]
     Indication: INFLUENZA
     Route: 065
     Dates: start: 20120402, end: 20120406
  9. LOXOPROFEN SODIUM [Concomitant]
     Indication: PYREXIA
     Route: 065
     Dates: start: 20130201
  10. OLOPATADINE HYDROCHLORIDE [Concomitant]
     Indication: DERMATITIS ALLERGIC
     Route: 065
     Dates: start: 20120201
  11. RISPERIDONE [Concomitant]
     Indication: DELIRIUM
     Route: 065
     Dates: start: 20120824, end: 20120828
  12. AMLODIPINE BESILATE [Concomitant]
     Indication: HYPERTENSION
     Route: 065
     Dates: start: 20120201
  13. NAPHAZOLINE NITRATE [Concomitant]
     Indication: RHINITIS ALLERGIC
     Dosage: AS NEEDED
     Route: 065
     Dates: start: 20120501, end: 20120828

REACTIONS (5)
  - Myelodysplastic syndrome [Not Recovered/Not Resolved]
  - Pneumocystis jirovecii pneumonia [Recovered/Resolved]
  - Acute myeloid leukaemia [Fatal]
  - Hypopharyngeal cancer [Recovering/Resolving]
  - Pneumothorax [Recovered/Resolved]
